FAERS Safety Report 25837881 (Version 1)
Quarter: 2025Q3

REPORT INFORMATION
  Report Type: Spontaneous
  Country: EU (occurrence: EU)
  Receive Date: 20250923
  Receipt Date: 20250923
  Transmission Date: 20251020
  Serious: Yes (Other)
  Sender: MYLAN
  Company Number: None

PATIENT
  Age: 67 Year
  Sex: Female

DRUGS (1)
  1. KETOPROFEN [Suspect]
     Active Substance: KETOPROFEN
     Indication: Product used for unknown indication
     Dosage: 600 MILLIGRAM, QD, 600 MG DAY, ABUSE
     Dates: start: 20250513

REACTIONS (3)
  - Drug abuse [Recovering/Resolving]
  - Intentional self-injury [Unknown]
  - Melaena [Recovering/Resolving]

NARRATIVE: CASE EVENT DATE: 20250513
